FAERS Safety Report 7932420-2 (Version None)
Quarter: 2011Q4

REPORT INFORMATION
  Report Type: 
  Country: None (occurrence: None)
  Receive Date: 20111122
  Receipt Date: 20111116
  Transmission Date: 20120403
  Serious: Yes (Hospitalization)
  Sender: FDA-Public Use
  Company Number: US-BIOGENIDEC-2011BI019078

PATIENT
  Age: 55 Year
  Sex: Male

DRUGS (1)
  1. AVONEX [Suspect]
     Indication: MULTIPLE SCLEROSIS
     Route: 030
     Dates: start: 20080607

REACTIONS (4)
  - INTERVERTEBRAL DISC PROTRUSION [None]
  - CYSTITIS [None]
  - WOUND DEHISCENCE [None]
  - URINARY RETENTION [None]
